FAERS Safety Report 4382972-7 (Version None)
Quarter: 2004Q2

REPORT INFORMATION
  Report Type: 
  Country: None (occurrence: None)
  Receive Date: 20040617
  Receipt Date: 20040525
  Transmission Date: 20050107
  Serious: Yes (Other)
  Sender: FDA-Public Use
  Company Number: CIP04001225

PATIENT
  Sex: Female

DRUGS (2)
  1. BENET(RISEDRONATE SODIUM) TABLET, 2.5MG [Suspect]
     Indication: OSTEOPOROSIS
     Dosage: 2.5MG DAILY, ORAL
     Route: 048
  2. ANTINEOPLASTIC AGENTS [Concomitant]

REACTIONS (3)
  - DERMATITIS EXFOLIATIVE [None]
  - ERYTHEMA [None]
  - STEVENS-JOHNSON SYNDROME [None]
